FAERS Safety Report 26165264 (Version 1)
Quarter: 2025Q4

REPORT INFORMATION
  Report Type: Report from Study
  Country: BR (occurrence: BR)
  Receive Date: 20251216
  Receipt Date: 20251216
  Transmission Date: 20260117
  Serious: Yes (Life-Threatening, Disabling)
  Sender: NOVARTIS
  Company Number: BR-002147023-NVSC2025BR187627

PATIENT
  Age: 0 Year
  Sex: Male
  Weight: 9.5 kg

DRUGS (2)
  1. ZOLGENSMA [Suspect]
     Active Substance: ONASEMNOGENE ABEPARVOVEC-XIOI
     Indication: Spinal muscular atrophy
     Dosage: 53 ML IN A CONTINUOUS INFUSION PUMP, INFUSION IN 1 HOUR
     Route: 042
     Dates: start: 20250923, end: 20250923
  2. PREDNISOLONE [Concomitant]
     Active Substance: PREDNISOLONE
     Indication: Product used for unknown indication
     Dosage: 6 ML, QD (3 MG/ML) (AT A DOSE OF 6ML)
     Route: 065
     Dates: start: 20250922

REACTIONS (2)
  - Aspartate aminotransferase increased [Recovering/Resolving]
  - Alanine aminotransferase increased [Recovering/Resolving]

NARRATIVE: CASE EVENT DATE: 20251101
